FAERS Safety Report 6090322-3 (Version None)
Quarter: 2009Q1

REPORT INFORMATION
  Report Type: 
  Country: None (occurrence: None)
  Receive Date: 20090224
  Receipt Date: 20081218
  Transmission Date: 20090719
  Serious: No
  Sender: FDA-Public Use
  Company Number: US-ABBOTT-08P-163-0494177-00

PATIENT
  Sex: Female
  Weight: 158.9 kg

DRUGS (8)
  1. SIMCOR [Suspect]
     Indication: BLOOD CHOLESTEROL
     Dates: start: 20081001
  2. NORVASC [Concomitant]
     Indication: BLOOD PRESSURE
  3. MARDIS [Concomitant]
     Indication: BLOOD PRESSURE
  4. SYNTHROID [Concomitant]
     Indication: THYROID DISORDER
  5. PLAQUENIL [Concomitant]
     Indication: SARCOIDOSIS
  6. METFORMIN [Concomitant]
     Indication: DIABETES MELLITUS
  7. PRENATAL VIT [Concomitant]
     Indication: MINERAL SUPPLEMENTATION
  8. OMEGA FISH OIL [Concomitant]
     Indication: DRUG USE FOR UNKNOWN INDICATION

REACTIONS (2)
  - BURNING SENSATION [None]
  - PRURITUS [None]
